FAERS Safety Report 7948865-0 (Version None)
Quarter: 2011Q4

REPORT INFORMATION
  Report Type: 
  Country: None (occurrence: None)
  Receive Date: 20111130
  Receipt Date: 20111121
  Transmission Date: 20120403
  Serious: Yes (Hospitalization)
  Sender: FDA-Public Use
  Company Number: US-JNJFOC-20111110305

PATIENT
  Age: 65 Year
  Sex: Male
  Weight: 100.02 kg

DRUGS (24)
  1. PANCRELIPASE MT 10 [Suspect]
     Dosage: 30,000-10,000-30,000
     Route: 048
     Dates: start: 20091021, end: 20100122
  2. AXITINIB [Suspect]
     Route: 048
     Dates: start: 20081213, end: 20091102
  3. AXITINIB [Suspect]
     Route: 048
     Dates: start: 20071101, end: 20071228
  4. AXITINIB [Suspect]
     Route: 048
     Dates: start: 20081023, end: 20081205
  5. NASONEX [Concomitant]
     Route: 065
     Dates: start: 20071017
  6. AXITINIB [Suspect]
     Route: 048
     Dates: start: 20060518, end: 20060801
  7. AXITINIB [Suspect]
     Route: 048
     Dates: start: 20070629, end: 20071018
  8. ONDANSETRON HYDROCHLORIDE [Concomitant]
     Route: 061
     Dates: start: 20070914
  9. CASTOR OIL [Concomitant]
     Route: 065
     Dates: start: 20080414
  10. SYNTHROID [Concomitant]
     Route: 065
     Dates: start: 20060427
  11. IMODIUM [Concomitant]
     Route: 065
     Dates: start: 20080409
  12. AXITINIB [Suspect]
     Route: 048
     Dates: start: 20061130, end: 20070426
  13. AXITINIB [Suspect]
     Route: 048
     Dates: start: 20080821, end: 20081017
  14. PROTONIX [Concomitant]
     Route: 065
     Dates: start: 20071106
  15. AXITINIB [Suspect]
     Route: 048
     Dates: start: 20091111, end: 20100130
  16. AXITINIB [Suspect]
     Route: 048
     Dates: start: 20070427, end: 20070624
  17. AXITINIB [Suspect]
     Route: 048
     Dates: start: 20080102, end: 20080820
  18. NORVASC [Concomitant]
     Route: 065
     Dates: start: 20070514
  19. COMPAZINE [Concomitant]
     Route: 065
     Dates: start: 20060321
  20. PANCRELIPASE MT 10 [Suspect]
     Indication: PRODUCT USED FOR UNKNOWN INDICATION
     Dosage: 30,000-10,000-30,000
     Route: 048
     Dates: start: 20100201
  21. PANCRELIPASE MT 4 [Suspect]
     Indication: PRODUCT USED FOR UNKNOWN INDICATION
     Dosage: 12,000-4,000-12,000
     Route: 048
     Dates: start: 20100123, end: 20100131
  22. AXITINIB [Suspect]
     Indication: RENAL CANCER
     Route: 048
     Dates: start: 20060810, end: 20061129
  23. AXITINIB [Suspect]
     Route: 048
     Dates: start: 20060321, end: 20060515
  24. LOMOTIL [Concomitant]
     Route: 065
     Dates: start: 20070620

REACTIONS (3)
  - DEHYDRATION [None]
  - VOMITING [None]
  - DIARRHOEA [None]
